FAERS Safety Report 10961133 (Version 1)
Quarter: 2015Q1

REPORT INFORMATION
  Report Type: Spontaneous
  Country: JP (occurrence: None)
  Receive Date: 20150325
  Receipt Date: 20150325
  Transmission Date: 20150721
  Serious: No
  Sender: FDA-Public Use
  Company Number: JP-20150022

PATIENT
  Age: 1 Year
  Sex: Female

DRUGS (1)
  1. LIPIODOL ULTRA FLUID [Suspect]
     Active Substance: ETHIODIZED OIL
     Indication: THERAPEUTIC EMBOLISATION
     Route: 013

REACTIONS (4)
  - Product use issue [None]
  - Pyrexia [None]
  - Aspartate aminotransferase increased [None]
  - C-reactive protein increased [None]
